FAERS Safety Report 24460616 (Version 1)
Quarter: 2024Q4

REPORT INFORMATION
  Report Type: Report from Study
  Country: US (occurrence: US)
  Receive Date: 20241018
  Receipt Date: 20241018
  Transmission Date: 20250114
  Serious: No
  Sender: ROCHE
  Company Number: US-ROCHE-3559616

PATIENT
  Age: 61 Year
  Sex: Female

DRUGS (1)
  1. RITUXAN [Suspect]
     Active Substance: RITUXIMAB
     Indication: Product used for unknown indication
     Route: 041

REACTIONS (5)
  - Rheumatoid arthritis [Unknown]
  - Fibromyalgia [Unknown]
  - Migraine [Unknown]
  - Neuropathy peripheral [Unknown]
  - Cerebrovascular arteriovenous malformation [Unknown]
